FAERS Safety Report 18512287 (Version 7)
Quarter: 2021Q3

REPORT INFORMATION
  Report Type: Report from Study
  Country: JP (occurrence: JP)
  Receive Date: 20201117
  Receipt Date: 20210907
  Transmission Date: 20211014
  Serious: Yes (Death, Hospitalization)
  Sender: FDA-Public Use
  Company Number: JP-PFIZER INC-2020453756

PATIENT
  Age: 79 Year
  Sex: Male
  Weight: 48.1 kg

DRUGS (17)
  1. FUROSEMIDE. [Concomitant]
     Active Substance: FUROSEMIDE
     Indication: CARDIAC AMYLOIDOSIS
  2. SAMSCA [Concomitant]
     Active Substance: TOLVAPTAN
     Indication: CARDIAC AMYLOIDOSIS
  3. RENIVACE [Concomitant]
     Active Substance: ENALAPRIL
     Indication: CARDIAC FAILURE
     Dosage: 5 MG, DAILY
     Route: 048
  4. SELARA [Concomitant]
     Active Substance: EPLERENONE
     Indication: CARDIAC FAILURE
     Dosage: 25 MG, DAILY
     Route: 048
     Dates: start: 20161219
  5. FEBURIC [Concomitant]
     Active Substance: FEBUXOSTAT
     Indication: HYPERURICAEMIA
     Dosage: 10 MG, DAILY
     Route: 048
  6. BAYASPIRIN [Concomitant]
     Active Substance: ASPIRIN
     Indication: CARDIAC AMYLOIDOSIS
     Dosage: UNK
     Route: 048
     Dates: start: 20160305
  7. FUROSEMIDE. [Concomitant]
     Active Substance: FUROSEMIDE
     Indication: CARDIAC FAILURE
     Dosage: 60 MG, DAILY
     Route: 048
     Dates: start: 20160305
  8. NEXIUM [Concomitant]
     Active Substance: ESOMEPRAZOLE MAGNESIUM
     Indication: HAEMORRHAGE PROPHYLAXIS
     Dosage: 10 MG, DAILY
     Route: 048
  9. CRESTOR [Concomitant]
     Active Substance: ROSUVASTATIN CALCIUM
     Indication: DYSLIPIDAEMIA
  10. ENALAPRIL [Concomitant]
     Active Substance: ENALAPRIL
     Indication: CARDIAC AMYLOIDOSIS
     Dosage: UNK
     Route: 048
     Dates: start: 20160305
  11. SAMSCA [Concomitant]
     Active Substance: TOLVAPTAN
     Indication: CARDIAC FAILURE
     Dosage: 15 MG, DAILY
     Route: 048
     Dates: start: 20170703
  12. PLAVIX [Concomitant]
     Active Substance: CLOPIDOGREL BISULFATE
     Indication: PERCUTANEOUS CORONARY INTERVENTION
     Dosage: 75 MG, DAILY
     Route: 048
  13. CRESTOR [Concomitant]
     Active Substance: ROSUVASTATIN CALCIUM
     Indication: ANGINA PECTORIS
     Dosage: 2.5 MG, DAILY
     Route: 048
  14. SELARA [Concomitant]
     Active Substance: EPLERENONE
     Indication: CARDIAC AMYLOIDOSIS
  15. VYNDAQEL [Suspect]
     Active Substance: TAFAMIDIS MEGLUMINE
     Indication: CARDIAC AMYLOIDOSIS
     Dosage: 80 MG, 1X/DAY
     Route: 048
     Dates: start: 20200121
  16. VYNDAQEL [Suspect]
     Active Substance: TAFAMIDIS MEGLUMINE
     Indication: CARDIAC FAILURE
  17. BISOPROLOL [Concomitant]
     Active Substance: BISOPROLOL
     Indication: CARDIAC AMYLOIDOSIS
     Dosage: UNK
     Route: 048
     Dates: start: 20160305

REACTIONS (2)
  - Death [Fatal]
  - Cardiac failure congestive [Recovering/Resolving]

NARRATIVE: CASE EVENT DATE: 20201015
